FAERS Safety Report 4747348-9 (Version None)
Quarter: 2005Q3

REPORT INFORMATION
  Report Type: 
  Country: None (occurrence: None)
  Receive Date: 20050817
  Receipt Date: 20050510
  Transmission Date: 20060218
  Serious: Yes (Hospitalization)
  Sender: FDA-Public Use
  Company Number: US-MERCK-0505USA01520

PATIENT
  Age: 76 Year
  Sex: Male
  Weight: 81 kg

DRUGS (6)
  1. VIOXX [Suspect]
     Indication: ARTHRITIS
     Route: 048
     Dates: start: 20000201, end: 20030531
  2. ASPIRIN [Concomitant]
     Indication: PROPHYLAXIS
     Route: 065
     Dates: start: 19900101
  3. ATENOLOL [Concomitant]
     Indication: HYPERTENSION
     Route: 065
  4. ACIPHEX [Concomitant]
     Indication: DYSPEPSIA
     Route: 065
  5. ACIPHEX [Concomitant]
     Indication: GASTROINTESTINAL DISORDER
     Route: 065
  6. FLOMAX [Concomitant]
     Indication: POLLAKIURIA
     Route: 065

REACTIONS (2)
  - CORONARY ARTERY DISEASE [None]
  - HEART INJURY [None]
